FAERS Safety Report 9397881 (Version 2)
Quarter: 2014Q2

REPORT INFORMATION
  Report Type: Spontaneous
  Country: JP (occurrence: JP)
  Receive Date: 20130712
  Receipt Date: 20140411
  Transmission Date: 20141212
  Serious: Yes (Hospitalization)
  Sender: FDA-Public Use
  Company Number: JP-ASTRAZENECA-2013SE35909

PATIENT
  Age: 5 Year
  Sex: Female
  Weight: 14.5 kg

DRUGS (6)
  1. ANAPEINE [Suspect]
     Indication: EPIDURAL ANAESTHESIA
     Dosage: TOTAL 90 MG, 60 ML/H DURING SURGERY
     Route: 008
     Dates: start: 201305, end: 201305
  2. ANAPEINE [Suspect]
     Indication: POSTOPERATIVE ANALGESIA
     Dosage: TOTAL 90 MG, 60 ML/H DURING SURGERY
     Route: 008
     Dates: start: 201305, end: 201305
  3. ANAPEINE [Suspect]
     Indication: EPIDURAL ANAESTHESIA
     Route: 008
     Dates: start: 201305, end: 201305
  4. ANAPEINE [Suspect]
     Indication: POSTOPERATIVE ANALGESIA
     Route: 008
     Dates: start: 201305, end: 201305
  5. ANAPEINE [Suspect]
     Indication: EPIDURAL ANAESTHESIA
     Dosage: 6 MG/HOUR ON POSTOPERATIVE DAY 4, 92.2 MG
     Route: 008
     Dates: start: 201305, end: 201305
  6. ANAPEINE [Suspect]
     Indication: POSTOPERATIVE ANALGESIA
     Dosage: 6 MG/HOUR ON POSTOPERATIVE DAY 4, 92.2 MG
     Route: 008
     Dates: start: 201305, end: 201305

REACTIONS (8)
  - Overdose [Unknown]
  - Somnolence [Recovered/Resolved]
  - Muscular weakness [Recovered/Resolved]
  - Toxicity to various agents [Recovered/Resolved]
  - Monoplegia [Recovered/Resolved]
  - Hypoaesthesia [Recovered/Resolved]
  - Hypoaesthesia [Recovered/Resolved]
  - Depressed level of consciousness [Recovered/Resolved]
